FAERS Safety Report 12405627 (Version 1)
Quarter: 2016Q2

REPORT INFORMATION
  Report Type: Spontaneous
  Country: US (occurrence: None)
  Receive Date: 20160525
  Receipt Date: 20160525
  Transmission Date: 20160815
  Serious: Yes (Hospitalization)
  Sender: FDA-Public Use
  Company Number: None

PATIENT
  Age: 58 Year
  Sex: Male

DRUGS (1)
  1. REGORAFENIB [Suspect]
     Active Substance: REGORAFENIB
     Indication: COLON CANCER
     Dosage: 160MG  4TAB X 3 WEEKS  PO
     Route: 048
     Dates: start: 20160426, end: 20160523

REACTIONS (8)
  - Renal failure [None]
  - Dehydration [None]
  - Hyponatraemia [None]
  - Sepsis [None]
  - Blood lactic acid increased [None]
  - Hypophagia [None]
  - Fatigue [None]
  - Abdominal pain lower [None]

NARRATIVE: CASE EVENT DATE: 20160523
